FAERS Safety Report 6277433-4 (Version None)
Quarter: 2009Q3

REPORT INFORMATION
  Report Type: 
  Country: None (occurrence: None)
  Receive Date: 20090722
  Receipt Date: 20080611
  Transmission Date: 20100115
  Serious: No
  Sender: FDA-Public Use
  Company Number: US-BRISTOL-MYERS SQUIBB COMPANY-14223481

PATIENT
  Age: 3 Decade
  Sex: Male
  Weight: 84 kg

DRUGS (2)
  1. COUMADIN [Suspect]
     Indication: DEEP VEIN THROMBOSIS
     Dosage: COUMADIN 5MG 6JUN08-9JUN08 2TABS DAILY FOR 3 NIGHTS;1.5 TAB FOR 1 NIGHT;3TABQD 10JUN08 + 11JUN08.
     Dates: start: 20080525
  2. LOVENOX [Concomitant]

REACTIONS (1)
  - INTERNATIONAL NORMALISED RATIO DECREASED [None]
